FAERS Safety Report 4305834-X (Version None)
Quarter: 2004Q1

REPORT INFORMATION
  Report Type: 
  Country: None (occurrence: None)
  Receive Date: 20040225
  Receipt Date: 20040218
  Transmission Date: 20041129
  Serious: Yes (Hospitalization)
  Sender: FDA-Public Use
  Company Number: TAP2004Q00218

PATIENT
  Age: 11 Year
  Sex: Male
  Weight: 83.9154 kg

DRUGS (2)
  1. LUPRON DEPOT [Suspect]
     Indication: PRECOCIOUS PUBERTY
     Dosage: , 1 IN 1 M, INJECTION
     Dates: start: 20030201, end: 20031101
  2. ADDERALL (OBETROL) [Concomitant]

REACTIONS (7)
  - 5-HYDROXYINDOLACETIC ACID IN URINE INCREASED [None]
  - APPENDICECTOMY [None]
  - COLECTOMY [None]
  - FALSE POSITIVE LABORATORY RESULT [None]
  - HOT FLUSH [None]
  - NIGHT SWEATS [None]
  - NUCLEAR MAGNETIC RESONANCE IMAGING ABNORMAL [None]
